FAERS Safety Report 20838010 (Version 1)
Quarter: 2022Q2

REPORT INFORMATION
  Report Type: Spontaneous
  Country: US (occurrence: US)
  Receive Date: 20220517
  Receipt Date: 20220517
  Transmission Date: 20220721
  Serious: No
  Sender: FDA-Public Use
  Company Number: US-ALLERGAN-2201693US

PATIENT
  Age: 48 Year
  Sex: Female

DRUGS (9)
  1. KYBELLA [Suspect]
     Active Substance: DEOXYCHOLIC ACID
     Indication: Lipolysis procedure
     Dosage: 2 SYRINGES OF 1 ML
     Dates: start: 20211120, end: 20211120
  2. VITAMIN C [Concomitant]
     Active Substance: ASCORBIC ACID
  3. ESTRADIOL [Concomitant]
     Active Substance: ESTRADIOL
  4. CITALOPRAM HYDROBROMIDE [Concomitant]
     Active Substance: CITALOPRAM HYDROBROMIDE
  5. ASPIRIN [Concomitant]
     Active Substance: ASPIRIN
  6. IBUPROFEN [Concomitant]
     Active Substance: IBUPROFEN
  7. VITAMIN D NOS [Concomitant]
     Active Substance: VITAMIN D NOS
  8. BIOTIN [Concomitant]
     Active Substance: BIOTIN
  9. IRON [Concomitant]
     Active Substance: IRON

REACTIONS (2)
  - Choking sensation [Not Recovered/Not Resolved]
  - Injection site pain [Not Recovered/Not Resolved]

NARRATIVE: CASE EVENT DATE: 20211101
